FAERS Safety Report 21963202 (Version 1)
Quarter: 2023Q1

REPORT INFORMATION
  Report Type: Spontaneous
  Country: US (occurrence: US)
  Receive Date: 20230207
  Receipt Date: 20230207
  Transmission Date: 20230418
  Serious: No
  Sender: FDA-Public Use
  Company Number: US-PFIZER INC-202300051839

PATIENT
  Age: 71 Year
  Sex: Female

DRUGS (11)
  1. XELJANZ XR [Suspect]
     Active Substance: TOFACITINIB CITRATE
     Dosage: 11 MG, DAILY
     Route: 048
     Dates: start: 202204
  2. COENZYME Q10 [Concomitant]
     Active Substance: DIETARY SUPPLEMENT\UBIDECARENONE
  3. DAILY VITE [ASCORBIC ACID;CALCIUM PANTOTHENATE;COLECALCIFEROL;CYANOCOB [Concomitant]
     Dosage: 400 MCG
  4. FISH OIL [Concomitant]
     Active Substance: FISH OIL
  5. FOLIC ACID [Concomitant]
     Active Substance: FOLIC ACID
  6. MAGNESIUM [Concomitant]
     Active Substance: MAGNESIUM
  7. CALCIUM [Concomitant]
     Active Substance: CALCIUM
  8. HERBALS\TURMERIC [Concomitant]
     Active Substance: HERBALS\TURMERIC
  9. PYRIDOXINE [Concomitant]
     Active Substance: PYRIDOXINE
  10. VITAMIN C [Concomitant]
     Active Substance: ASCORBIC ACID
  11. ZINCO [ZINC] [Concomitant]

REACTIONS (1)
  - Weight increased [Not Recovered/Not Resolved]
